FAERS Safety Report 20595083 (Version 1)
Quarter: 2022Q1

REPORT INFORMATION
  Report Type: Spontaneous
  Country: US (occurrence: None)
  Receive Date: 20220314
  Receipt Date: 20220314
  Transmission Date: 20220424
  Serious: Yes (Hospitalization)
  Sender: FDA-Public Use
  Company Number: None

PATIENT
  Sex: Male
  Weight: 73.48 kg

DRUGS (2)
  1. LEUKINE [Suspect]
     Active Substance: SARGRAMOSTIM
     Indication: Brain neoplasm malignant
     Dosage: FREQUENCY : TWICE A WEEK;?
     Route: 058
  2. PEGASYS [Suspect]
     Active Substance: PEGINTERFERON ALFA-2A
     Indication: Brain neoplasm malignant
     Dosage: OTHER STRENGTH : 180/0.5 MCG/ML ;?FREQUENCY : WEEKLY;?
     Route: 058

REACTIONS (1)
  - COVID-19 [None]
